FAERS Safety Report 25057369 (Version 1)
Quarter: 2025Q1

REPORT INFORMATION
  Report Type: Spontaneous
  Country: CN (occurrence: CN)
  Receive Date: 20250310
  Receipt Date: 20250310
  Transmission Date: 20250408
  Serious: Yes (Other)
  Sender: GILEAD
  Company Number: CN-GILEAD-2025-0706077

PATIENT

DRUGS (1)
  1. BIKTARVY [Suspect]
     Active Substance: BICTEGRAVIR SODIUM\EMTRICITABINE\TENOFOVIR ALAFENAMIDE FUMARATE
     Indication: Product used for unknown indication
     Route: 065

REACTIONS (11)
  - Pulmonary tuberculosis [Recovered/Resolved]
  - Lymphadenopathy [Not Recovered/Not Resolved]
  - Lymph node pain [Not Recovered/Not Resolved]
  - Pyrexia [Unknown]
  - Oropharyngeal pain [Unknown]
  - Gastrointestinal sounds abnormal [Unknown]
  - Vision blurred [Unknown]
  - Back pain [Unknown]
  - Urine odour abnormal [Unknown]
  - Ocular icterus [Unknown]
  - Chromaturia [Unknown]
